FAERS Safety Report 20986805 (Version 1)
Quarter: 2022Q2

REPORT INFORMATION
  Report Type: Spontaneous
  Country: US (occurrence: None)
  Receive Date: 20220617
  Receipt Date: 20220617
  Transmission Date: 20220720
  Serious: Yes (unspecified)
  Sender: FDA-Public Use
  Company Number: None

PATIENT
  Age: 76 Year
  Sex: Female
  Weight: 80.6 kg

DRUGS (1)
  1. IMFINZI [Suspect]
     Active Substance: DURVALUMAB
     Indication: Lung neoplasm malignant
     Dosage: FREQUENCY : ONCE;?
     Route: 041
     Dates: start: 20220617, end: 20220617

REACTIONS (2)
  - Back pain [None]
  - Blood pressure increased [None]

NARRATIVE: CASE EVENT DATE: 20220617
